FAERS Safety Report 16936921 (Version 1)
Quarter: 2019Q4

REPORT INFORMATION
  Report Type: Spontaneous
  Country: US (occurrence: US)
  Receive Date: 20191018
  Receipt Date: 20191018
  Transmission Date: 20200122
  Serious: No
  Sender: FDA-Public Use
  Company Number: NVSC2019US008792

PATIENT
  Age: 55 Year
  Sex: Female

DRUGS (1)
  1. DICLOFENAC SODIUM. [Suspect]
     Active Substance: DICLOFENAC SODIUM
     Indication: PRODUCT USED FOR UNKNOWN INDICATION
     Dosage: UNK
     Route: 065
     Dates: start: 20190917, end: 20190924

REACTIONS (8)
  - Abdominal pain [Unknown]
  - Acne [Unknown]
  - Abdominal pain upper [Unknown]
  - Stress [Unknown]
  - Hypertension [Unknown]
  - Adverse drug reaction [Unknown]
  - Abdominal distension [Unknown]
  - Alopecia [Unknown]

NARRATIVE: CASE EVENT DATE: 20190917
